FAERS Safety Report 11181533 (Version 1)
Quarter: 2015Q2

REPORT INFORMATION
  Report Type: Spontaneous
  Country: US (occurrence: US)
  Receive Date: 20150611
  Receipt Date: 20150611
  Transmission Date: 20150821
  Serious: No
  Sender: FDA-Public Use
  Company Number: US-ASTELLAS-2015US013296

PATIENT
  Sex: Male

DRUGS (2)
  1. XTANDI [Suspect]
     Active Substance: ENZALUTAMIDE
     Indication: PRODUCT USED FOR UNKNOWN INDICATION
     Route: 065
     Dates: start: 20150228
  2. XTANDI [Suspect]
     Active Substance: ENZALUTAMIDE
     Dosage: 3 DF, ONCE DAILY (120 MG)
     Route: 065

REACTIONS (2)
  - Drug prescribing error [Unknown]
  - Fatigue [Unknown]
